FAERS Safety Report 5206543-5 (Version None)
Quarter: 2006Q4

REPORT INFORMATION
  Report Type: 
  Country: None (occurrence: None)
  Receive Date: 20061026
  Receipt Date: 20061031
  Transmission Date: 20070319
  Serious: No
  Sender: FDA-Public Use
  Company Number: 2006107145

PATIENT
  Sex: Male

DRUGS (3)
  1. LYRICA [Suspect]
     Indication: TREMOR
  2. DIPHENHYDRAMINE HCL [Suspect]
     Indication: PREMEDICATION
     Dosage: AS NECESSARY, INTRAVENOUS
     Route: 042
  3. IMMUNOGLOBULINS (IMMUNOGLOBULINS) [Suspect]
     Indication: DRUG USE FOR UNKNOWN INDICATION
     Dosage: INTRAVENOUS
     Route: 042

REACTIONS (2)
  - DRUG INTERACTION [None]
  - TREMOR [None]
